FAERS Safety Report 9645470 (Version 1)
Quarter: 2013Q4

REPORT INFORMATION
  Report Type: Spontaneous
  Country: US (occurrence: US)
  Receive Date: 20131025
  Receipt Date: 20131025
  Transmission Date: 20140711
  Serious: Yes (Hospitalization, Disabling, Other)
  Sender: FDA-Public Use
  Company Number: US-PFIZER INC-2013302150

PATIENT
  Age: 38 Year
  Sex: Male
  Weight: 92.52 kg

DRUGS (3)
  1. VIAGRA [Suspect]
     Indication: ERECTILE DYSFUNCTION
     Dosage: 100 MG, AS NEEDED
     Route: 048
     Dates: start: 2004
  2. ASPIRIN [Concomitant]
     Dosage: UNK, 1X/DAY
  3. FISH OIL [Concomitant]
     Dosage: UNK

REACTIONS (1)
  - Coronary artery stenosis [Recovered/Resolved]
